FAERS Safety Report 21943946 (Version 1)
Quarter: 2023Q1

REPORT INFORMATION
  Report Type: Spontaneous
  Country: US (occurrence: None)
  Receive Date: 20230201
  Receipt Date: 20230201
  Transmission Date: 20230417
  Serious: No
  Sender: FDA-Public Use
  Company Number: None

PATIENT
  Sex: Male

DRUGS (1)
  1. HUMIRA [Suspect]
     Active Substance: ADALIMUMAB
     Indication: Crohn^s disease
     Dosage: OTHER STRENGTH : 40MG/0.4ML;?OTHER FREQUENCY : EVERY 14 DAYS;?
     Route: 058
     Dates: start: 202009

REACTIONS (5)
  - Weight decreased [None]
  - Decreased appetite [None]
  - Nausea [None]
  - Drug ineffective [None]
  - Condition aggravated [None]
